FAERS Safety Report 5053708-1 (Version None)
Quarter: 2006Q3

REPORT INFORMATION
  Report Type: 
  Country: None (occurrence: None)
  Receive Date: 20060718
  Receipt Date: 20060615
  Transmission Date: 20061208
  Serious: Yes (Hospitalization)
  Sender: FDA-Public Use
  Company Number: US-ROCHE-452159

PATIENT
  Age: 68 Year
  Sex: Female

DRUGS (3)
  1. PEGASYS [Suspect]
     Route: 058
     Dates: start: 20060324, end: 20060707
  2. PEGASYS [Suspect]
     Dosage: IN WEEK 16 DOSE WAS REDUCED TO 135 MCG.
     Route: 058
     Dates: start: 20060707
  3. COPEGUS [Suspect]
     Route: 048
     Dates: start: 20060324

REACTIONS (5)
  - DECREASED APPETITE [None]
  - ERYTHEMA [None]
  - LOSS OF CONSCIOUSNESS [None]
  - POLLAKIURIA [None]
  - PRURITUS [None]
